FAERS Safety Report 22235235 (Version 1)
Quarter: 2023Q2

REPORT INFORMATION
  Report Type: Spontaneous
  Country: FR (occurrence: FR)
  Receive Date: 20230420
  Receipt Date: 20230420
  Transmission Date: 20230722
  Serious: Yes (Other)
  Sender: FDA-Public Use
  Company Number: FR-Shilpa Medicare Limited-SML-FR-2023-00489

PATIENT
  Age: 52 Year
  Sex: Female

DRUGS (2)
  1. DOCETAXEL [Suspect]
     Active Substance: DOCETAXEL
     Indication: Tuberous sclerosis complex
     Dosage: ON DAY 8
     Dates: start: 20200401
  2. GEMCITABINE [Suspect]
     Active Substance: GEMCITABINE
     Indication: Tuberous sclerosis complex
     Dosage: ON DAY1 AND DAY 8
     Dates: start: 20200401

REACTIONS (3)
  - Disease progression [Not Recovered/Not Resolved]
  - Drug ineffective [Unknown]
  - Off label use [Unknown]

NARRATIVE: CASE EVENT DATE: 20201201
